FAERS Safety Report 20875580 (Version 4)
Quarter: 2022Q2

REPORT INFORMATION
  Report Type: Spontaneous
  Country: JP (occurrence: JP)
  Receive Date: 20220526
  Receipt Date: 20220629
  Transmission Date: 20220721
  Serious: Yes (Other)
  Sender: FDA-Public Use
  Company Number: JP-SA-SAC20220525000580

PATIENT
  Age: 43 Year
  Sex: Female

DRUGS (5)
  1. XYZAL [Suspect]
     Active Substance: LEVOCETIRIZINE DIHYDROCHLORIDE
     Indication: Seasonal allergy
     Dosage: 5 MG, QD
     Dates: start: 202102, end: 202102
  2. OLOPATADINE HYDROCHLORIDE [Suspect]
     Active Substance: OLOPATADINE HYDROCHLORIDE
     Indication: Seasonal allergy
     Dosage: 10 MG
     Route: 047
     Dates: start: 202102, end: 202103
  3. RUPAFIN [Suspect]
     Active Substance: RUPATADINE FUMARATE
     Indication: Seasonal allergy
     Dosage: 10 MG
     Route: 048
     Dates: start: 202102, end: 202103
  4. RUPAFIN [Suspect]
     Active Substance: RUPATADINE FUMARATE
  5. CEPHARANTHINE [Concomitant]
     Active Substance: CEPHARANTHINE
     Dosage: UNK

REACTIONS (2)
  - Alopecia areata [Not Recovered/Not Resolved]
  - Autoimmune disorder [Unknown]

NARRATIVE: CASE EVENT DATE: 20210301
